FAERS Safety Report 7213446-3 (Version None)
Quarter: 2010Q4

REPORT INFORMATION
  Report Type: 
  Country: None (occurrence: None)
  Receive Date: 20101126
  Receipt Date: 20100727
  Transmission Date: 20110411
  Serious: No
  Sender: FDA-Public Use
  Company Number: 312061

PATIENT
  Age: 27 Year
  Sex: Female

DRUGS (1)
  1. VICTOZA [Suspect]
     Indication: OVERWEIGHT
     Dosage: SUBCUTANEOUS
     Route: 058

REACTIONS (2)
  - INJECTION SITE ERYTHEMA [None]
  - INJECTION SITE RASH [None]
